FAERS Safety Report 22066512 (Version 1)
Quarter: 2023Q1

REPORT INFORMATION
  Report Type: Spontaneous
  Country: US (occurrence: None)
  Receive Date: 20230306
  Receipt Date: 20230306
  Transmission Date: 20230417
  Serious: No
  Sender: FDA-Public Use
  Company Number: None

PATIENT
  Age: 69 Year
  Sex: Female
  Weight: 79.45 kg

DRUGS (10)
  1. DAPAGLIFLOZIN [Suspect]
     Active Substance: DAPAGLIFLOZIN
     Indication: Type 2 diabetes mellitus
     Dosage: DAILY ORAL?
     Route: 048
     Dates: start: 20230223, end: 20230228
  2. ASPIRIN [Concomitant]
     Active Substance: ASPIRIN
  3. ALBUTEROL [Concomitant]
     Active Substance: ALBUTEROL
  4. Butalibital [Concomitant]
  5. ATORVASTATIN [Concomitant]
     Active Substance: ATORVASTATIN
  6. Olmesartan 5mg [Concomitant]
  7. NAPROXEN [Concomitant]
     Active Substance: NAPROXEN
  8. METFORMIN [Concomitant]
     Active Substance: METFORMIN HYDROCHLORIDE
  9. Triseba [Concomitant]
  10. INSULIN ASPART [Concomitant]
     Active Substance: INSULIN ASPART

REACTIONS (6)
  - Blood pressure increased [None]
  - Dizziness [None]
  - Confusional state [None]
  - Headache [None]
  - Hyperhidrosis [None]
  - Heart rate increased [None]

NARRATIVE: CASE EVENT DATE: 20230228
